FAERS Safety Report 10314186 (Version 1)
Quarter: 2014Q3

REPORT INFORMATION
  Report Type: Spontaneous
  Country: US (occurrence: None)
  Receive Date: 20140717
  Receipt Date: 20140717
  Transmission Date: 20150326
  Serious: Yes (Other)
  Sender: FDA-Public Use
  Company Number: None

PATIENT
  Age: 67 Year
  Sex: Female
  Weight: 81.65 kg

DRUGS (2)
  1. CEFDINIR. [Suspect]
     Active Substance: CEFDINIR
     Indication: PYREXIA
     Dosage: CAPSULS 2 EVERY 12HRS FOR 10 DAYS
     Dates: start: 20140403, end: 20140410
  2. CEFDINIR. [Suspect]
     Active Substance: CEFDINIR
     Indication: SINUSITIS
     Dosage: CAPSULS 2 EVERY 12HRS FOR 10 DAYS
     Dates: start: 20140403, end: 20140410

REACTIONS (5)
  - Neuralgia [None]
  - Muscle tightness [None]
  - Paraesthesia [None]
  - Musculoskeletal stiffness [None]
  - Hemiplegia [None]

NARRATIVE: CASE EVENT DATE: 20140403
